FAERS Safety Report 17795530 (Version 1)
Quarter: 2020Q2

REPORT INFORMATION
  Report Type: Spontaneous
  Country: GB (occurrence: GB)
  Receive Date: 20200516
  Receipt Date: 20200516
  Transmission Date: 20200714
  Serious: Yes (Hospitalization, Other)
  Sender: FDA-Public Use
  Company Number: GB-AUROBINDO-AUR-APL-2020-024293

PATIENT
  Age: 70 Year
  Sex: Female

DRUGS (2)
  1. LOPERAMIDE CAPSULE, HARD [Suspect]
     Active Substance: LOPERAMIDE
     Indication: DIARRHOEA
     Dosage: 2 MG 10 TIMES/DAY
     Route: 065
  2. SANDOSTATIN [Suspect]
     Active Substance: OCTREOTIDE ACETATE
     Indication: NEUROENDOCRINE TUMOUR
     Dosage: 30 MILLIGRAM (EVERY 21 DAYS)
     Route: 030
     Dates: start: 20170712

REACTIONS (3)
  - Body temperature increased [Unknown]
  - Renal disorder [Unknown]
  - Nephrostomy [Unknown]
